FAERS Safety Report 6492146-1 (Version None)
Quarter: 2009Q4

REPORT INFORMATION
  Report Type: 
  Country: None (occurrence: None)
  Receive Date: 20091214
  Receipt Date: 20091209
  Transmission Date: 20100525
  Serious: Yes (Other)
  Sender: FDA-Public Use
  Company Number: GB-RANBAXY-2009RR-25750

PATIENT
  Age: 40 Year
  Sex: Female

DRUGS (2)
  1. FLUCONAZOLE [Suspect]
     Indication: ANTIFUNGAL PROPHYLAXIS
     Dosage: 100 MG, QD
     Route: 065
  2. PREDNISOLONE [Suspect]
     Indication: HEPATITIS ALCOHOLIC
     Dosage: 20 MG, QD
     Route: 065

REACTIONS (7)
  - DYSPHAGIA [None]
  - DYSURIA [None]
  - FOREIGN BODY SENSATION IN EYES [None]
  - MALAISE [None]
  - PYREXIA [None]
  - RASH [None]
  - STEVENS-JOHNSON SYNDROME [None]
